FAERS Safety Report 4854938-1 (Version None)
Quarter: 2005Q4

REPORT INFORMATION
  Report Type: 
  Country: None (occurrence: None)
  Receive Date: 20051213
  Receipt Date: 20051201
  Transmission Date: 20060501
  Serious: Yes (Hospitalization)
  Sender: FDA-Public Use
  Company Number: HQWYE804801DEC05

PATIENT
  Age: 70 Year
  Sex: Male

DRUGS (3)
  1. TRANGOREX (AMIODARONE, TABLET) [Suspect]
     Indication: ATRIAL FIBRILLATION
     Dosage: 150 MG 1X PER 1 DAY
     Dates: start: 20050601
  2. TRANGOREX (AMIODARONE, TABLET) [Suspect]
     Indication: SYNCOPE
     Dosage: 150 MG 1X PER 1 DAY
     Dates: start: 20050601
  3. DIGOXIN (DIXOGIN) [Concomitant]

REACTIONS (2)
  - HYPOCALCAEMIA [None]
  - MUSCLE SPASMS [None]
